FAERS Safety Report 24359239 (Version 1)
Quarter: 2024Q3

REPORT INFORMATION
  Report Type: Spontaneous
  Country: CN (occurrence: CN)
  Receive Date: 20240924
  Receipt Date: 20240924
  Transmission Date: 20241016
  Serious: No
  Sender: Unknown Manufacturer
  Company Number: CN-ROCHE-3545813

PATIENT

DRUGS (1)
  1. GAVRETO [Suspect]
     Active Substance: PRALSETINIB
     Indication: Lung adenocarcinoma
     Dosage: 400 MILLIGRAM, QD
     Route: 048
     Dates: start: 202311

REACTIONS (1)
  - Anaemia [Recovering/Resolving]

NARRATIVE: CASE EVENT DATE: 20240101
